FAERS Safety Report 6876654-7 (Version None)
Quarter: 2010Q3

REPORT INFORMATION
  Report Type: 
  Country: None (occurrence: None)
  Receive Date: 20100727
  Receipt Date: 20100716
  Transmission Date: 20110219
  Serious: Yes (Hospitalization)
  Sender: FDA-Public Use
  Company Number: JP-ROCHE-700630

PATIENT
  Sex: Female
  Weight: 42 kg

DRUGS (6)
  1. HERCEPTIN [Suspect]
     Indication: BREAST CANCER METASTATIC
     Route: 041
     Dates: start: 20050823, end: 20050823
  2. HERCEPTIN [Suspect]
     Route: 041
     Dates: start: 20050830, end: 20060607
  3. HERCEPTIN [Suspect]
     Route: 041
     Dates: start: 20060613
  4. TAXOTERE [Concomitant]
     Dosage: NOTE: 12 TIMES
     Route: 041
     Dates: start: 20051226, end: 20060516
  5. HALCION [Concomitant]
     Route: 048
     Dates: start: 20070724
  6. EBASTINE [Concomitant]
     Route: 048
     Dates: start: 20100303, end: 20100316

REACTIONS (1)
  - SUDDEN HEARING LOSS [None]
